FAERS Safety Report 4347631-5 (Version None)
Quarter: 2004Q2

REPORT INFORMATION
  Report Type: 
  Country: None (occurrence: None)
  Receive Date: 20040422
  Receipt Date: 20040409
  Transmission Date: 20050107
  Serious: Yes (Hospitalization)
  Sender: FDA-Public Use
  Company Number: USA040463835

PATIENT
  Sex: Female
  Weight: 91 kg

DRUGS (3)
  1. GEMZAR [Suspect]
     Indication: BREAST CANCER METASTATIC
     Dosage: 800 MG/M2/1 EVERY OTHER WEEK;
     Dates: start: 20030923, end: 20040317
  2. HERCEPTIN [Concomitant]
  3. ZOMETA [Concomitant]

REACTIONS (4)
  - BLOOD BILIRUBIN INCREASED [None]
  - CHOLANGITIS SCLEROSING [None]
  - HEPATIC CANCER METASTATIC [None]
  - RENAL FAILURE ACUTE [None]
